FAERS Safety Report 11306555 (Version 5)
Quarter: 2016Q1

REPORT INFORMATION
  Report Type: Report from Study
  Country: BR (occurrence: BR)
  Receive Date: 20150723
  Receipt Date: 20160210
  Transmission Date: 20160525
  Serious: Yes (Hospitalization, Disabling, Other)
  Sender: FDA-Public Use
  Company Number: BR-ABBVIE-09P-020-0568306-00

PATIENT
  Age: 58 Year
  Sex: Female
  Weight: 59 kg

DRUGS (12)
  1. FOLIC ACID. [Concomitant]
     Active Substance: FOLIC ACID
     Indication: PROPHYLAXIS
     Route: 048
     Dates: start: 2005
  2. METHOTREXATE [Concomitant]
     Active Substance: METHOTREXATE
     Indication: RHEUMATOID ARTHRITIS
     Route: 048
     Dates: start: 2005
  3. CALCIUM [Concomitant]
     Active Substance: CALCIUM
     Indication: OSTEOPOROSIS PROPHYLAXIS
  4. METHOTREXATE [Concomitant]
     Active Substance: METHOTREXATE
     Indication: INFLAMMATION
  5. HUMIRA [Suspect]
     Active Substance: ADALIMUMAB
     Indication: RHEUMATOID ARTHRITIS
     Route: 058
  6. HUMIRA [Suspect]
     Active Substance: ADALIMUMAB
     Route: 058
     Dates: start: 20081014
  7. CALCIUM [Concomitant]
     Active Substance: CALCIUM
     Indication: BONE DISORDER
     Route: 048
     Dates: start: 2005
  8. FOLIC ACID. [Concomitant]
     Active Substance: FOLIC ACID
     Indication: LIVER DISORDER
  9. FLUOXETINE [Concomitant]
     Active Substance: FLUOXETINE HYDROCHLORIDE
     Indication: DEPRESSION
     Route: 048
     Dates: start: 2009
  10. CALCIUM CARBONATE AND VITAMIN D [Concomitant]
     Indication: OSTEOPENIA
     Route: 048
     Dates: start: 1995
  11. VITAMIN D [Concomitant]
     Active Substance: CHOLECALCIFEROL
     Indication: PRODUCT USED FOR UNKNOWN INDICATION
  12. RIVOTRIL [Concomitant]
     Active Substance: CLONAZEPAM
     Indication: INSOMNIA
     Route: 048
     Dates: start: 2009

REACTIONS (33)
  - Joint range of motion decreased [Unknown]
  - Productive cough [Recovered/Resolved]
  - Bronchiectasis [Recovered/Resolved]
  - Procedural pain [Not Recovered/Not Resolved]
  - Joint swelling [Recovered/Resolved]
  - Tendonitis [Unknown]
  - Synovitis [Unknown]
  - Rheumatoid arthritis [Unknown]
  - Cartilage injury [Unknown]
  - Pain [Unknown]
  - Osteoarthropathy [Unknown]
  - Mood altered [Unknown]
  - Arthralgia [Recovered/Resolved]
  - Arthralgia [Not Recovered/Not Resolved]
  - Knee deformity [Recovered/Resolved]
  - Elbow deformity [Unknown]
  - Arthropathy [Unknown]
  - Arthralgia [Not Recovered/Not Resolved]
  - Osteoarthritis [Recovered/Resolved]
  - Joint effusion [Unknown]
  - Arthropathy [Unknown]
  - Necrosis [Recovered/Resolved]
  - Cartilage injury [Recovered/Resolved]
  - Pneumonia [Recovered/Resolved]
  - Immunodeficiency [Unknown]
  - Cartilage injury [Recovering/Resolving]
  - Knee arthroplasty [Recovered/Resolved]
  - Epicondylitis [Unknown]
  - Skin lesion [Unknown]
  - Ligament disorder [Unknown]
  - Joint swelling [Unknown]
  - Cough [Recovered/Resolved]
  - Knee arthroplasty [Recovered/Resolved]

NARRATIVE: CASE EVENT DATE: 2009
